FAERS Safety Report 10932106 (Version 1)
Quarter: 2015Q1

REPORT INFORMATION
  Report Type: Spontaneous
  Country: US (occurrence: None)
  Receive Date: 20150212
  Receipt Date: 20150212
  Transmission Date: 20150721
  Serious: Yes (Hospitalization)
  Sender: FDA-Public Use
  Company Number: TPA2010A06177

PATIENT
  Age: 90 Year
  Sex: Male
  Weight: 88.45 kg

DRUGS (12)
  1. METOLAZONE (METOLAZONE) [Concomitant]
  2. POTASSIUM CHLORIDE  (POTASSIUM CHLORIDE) (SOLUTION) [Concomitant]
  3. ASPIRIN (ACETYLSALICYLIC ACID) [Concomitant]
     Active Substance: ASPIRIN
  4. MULTIVITAMINS (ERGOCALCIFEROL, ASCORBIC ACID, FOLIC ACID, THIAMINE HYDROCHLORIDE, RETINOL, RIBOFLAVIN NICOTINAMIDE, PANTHENOL) [Concomitant]
  5. LORATADINE (LORATADINE) [Concomitant]
  6. ULORIC [Suspect]
     Active Substance: FEBUXOSTAT
     Dates: start: 20100423, end: 20100425
  7. VITAMIN B-12 (CYANOCOBALAMIN) [Concomitant]
  8. VITAMIN B6 (PYRIDOXINE HYDROHCLORIDE) [Concomitant]
  9. ALLOPURINOL (ALLOPURINOL) [Suspect]
     Active Substance: ALLOPURINOL
     Dates: end: 20100422
  10. FUROSEMIDE (FUROSEMIDE) [Concomitant]
     Active Substance: FUROSEMIDE
  11. FOLIC ACID  (FOLIC ACID) [Concomitant]
     Active Substance: FOLIC ACID
  12. PLAVIX [Concomitant]
     Active Substance: CLOPIDOGREL BISULFATE

REACTIONS (2)
  - Muscular weakness [None]
  - Feeling abnormal [None]

NARRATIVE: CASE EVENT DATE: 20100424
